FAERS Safety Report 7767705-6 (Version None)
Quarter: 2011Q3

REPORT INFORMATION
  Report Type: 
  Country: None (occurrence: None)
  Receive Date: 20110922
  Receipt Date: 20110919
  Transmission Date: 20111222
  Serious: Yes (Hospitalization, Other)
  Sender: FDA-Public Use
  Company Number: FR-PFIZER INC-2011221029

PATIENT
  Age: 62 Year
  Sex: Male

DRUGS (4)
  1. KALETRA [Suspect]
     Indication: ACQUIRED IMMUNODEFICIENCY SYNDROME
     Dosage: UNK
     Route: 048
  2. DIAMICRON [Suspect]
     Dosage: UNK
     Route: 048
  3. ABACAVIR SULFATE AND LAMIVUDINE [Suspect]
     Indication: ACQUIRED IMMUNODEFICIENCY SYNDROME
     Dosage: UNK
     Route: 048
  4. NEURONTIN [Suspect]
     Dosage: UNK
     Route: 048

REACTIONS (8)
  - DIZZINESS [None]
  - AZOTAEMIA [None]
  - SINUS BRADYCARDIA [None]
  - ASTHENIA [None]
  - MALAISE [None]
  - C-REACTIVE PROTEIN INCREASED [None]
  - HYPERCREATINAEMIA [None]
  - ANAEMIA [None]
